FAERS Safety Report 16311243 (Version 3)
Quarter: 2020Q1

REPORT INFORMATION
  Report Type: Report from Study
  Country: US (occurrence: US)
  Receive Date: 20190514
  Receipt Date: 20200117
  Transmission Date: 20200409
  Serious: No
  Sender: FDA-Public Use
  Company Number: US-009507513-1905USA005323

PATIENT
  Sex: Female

DRUGS (1)
  1. BELSOMRA [Suspect]
     Active Substance: SUVOREXANT
     Indication: SLEEP DISORDER
     Dosage: 20 MILLIGRAM, HS (ONE TABLET AT NIGHT)
     Route: 048

REACTIONS (5)
  - Ocular hyperaemia [Unknown]
  - Dry eye [Unknown]
  - Product dose omission [Unknown]
  - Eye pain [Unknown]
  - Insomnia [Unknown]
